FAERS Safety Report 5837448-4 (Version None)
Quarter: 2008Q3

REPORT INFORMATION
  Report Type: 
  Country: None (occurrence: None)
  Receive Date: 20080807
  Receipt Date: 20080804
  Transmission Date: 20090109
  Serious: Yes (Hospitalization)
  Sender: FDA-Public Use
  Company Number: US-ELI_LILLY_AND_COMPANY-US200807001501

PATIENT
  Sex: Female

DRUGS (13)
  1. BYETTA [Suspect]
     Indication: TYPE 2 DIABETES MELLITUS
     Dosage: 5 UG, 2/D
     Route: 058
     Dates: start: 20060101
  2. NOVOLIN 70/30 [Concomitant]
     Dosage: 50 U, EACH MORNING
  3. NOVOLIN 70/30 [Concomitant]
     Dosage: 56 U, EACH EVENING
  4. GLUCOPHAGE [Concomitant]
     Indication: TYPE 2 DIABETES MELLITUS
     Dosage: 1000 MG, 2/D
  5. GLUCOPHAGE [Concomitant]
     Dosage: 1000 D/F, DAILY (1/D)
  6. ASPIRIN [Concomitant]
     Dosage: 325 MG, DAILY (1/D)
  7. NORVASC [Concomitant]
     Dosage: 5 MG, DAILY (1/D)
     Dates: end: 20070101
  8. NORVASC [Concomitant]
     Dosage: 10 MG, DAILY (1/D)
     Dates: start: 20070101
  9. CENTRUM                            /00554501/ [Concomitant]
     Dosage: UNK, DAILY (1/D)
  10. NEURONTIN [Concomitant]
     Dosage: 300 MG, DAILY (1/D)
  11. LOVASTATIN [Concomitant]
     Dosage: 10 MG, DAILY (1/D)
     Route: 048
  12. ACCURETIC [Concomitant]
     Dosage: UNK, DAILY (1/D)
     Route: 048
  13. ZANTAC [Concomitant]
     Dosage: 75 MG, DAILY (1/D)
     Route: 048

REACTIONS (4)
  - ACUTE CORONARY SYNDROME [None]
  - CORONARY ARTERY DISEASE [None]
  - HYPERGLYCAEMIA [None]
  - INJECTION SITE HAEMORRHAGE [None]
